FAERS Safety Report 10036768 (Version 1)
Quarter: 2014Q1

REPORT INFORMATION
  Report Type: Spontaneous
  Country: US (occurrence: US)
  Receive Date: 20140326
  Receipt Date: 20140326
  Transmission Date: 20141002
  Serious: No
  Sender: FDA-Public Use
  Company Number: US-BIOGENIDEC-2014BI024869

PATIENT
  Age: 44 Year
  Sex: Female

DRUGS (6)
  1. TECFIDERA [Suspect]
     Indication: MULTIPLE SCLEROSIS
     Route: 048
     Dates: start: 201307, end: 201311
  2. TECFIDERA [Suspect]
     Indication: MULTIPLE SCLEROSIS
     Route: 048
     Dates: start: 201401
  3. LAMICTAL [Concomitant]
  4. VITAMIN D [Concomitant]
  5. VICODIN PRN [Concomitant]
  6. SYMBICORT PRN [Concomitant]

REACTIONS (6)
  - Pneumonia [Recovered/Resolved]
  - Respiratory tract infection [Recovered/Resolved]
  - Gait disturbance [Unknown]
  - Arthralgia [Unknown]
  - Dysstasia [Unknown]
  - Infection [Recovered/Resolved]
